FAERS Safety Report 8236494-3 (Version None)
Quarter: 2012Q1

REPORT INFORMATION
  Report Type: 
  Country: None (occurrence: None)
  Receive Date: 20120327
  Receipt Date: 20120316
  Transmission Date: 20120608
  Serious: Yes (Disabling, Other)
  Sender: FDA-Public Use
  Company Number: GB-ASTELLAS-2012US002763

PATIENT
  Sex: Male
  Weight: 79 kg

DRUGS (19)
  1. RANITIDINE [Concomitant]
     Indication: GASTROOESOPHAGEAL REFLUX DISEASE
     Dosage: UNK
     Route: 065
     Dates: start: 20101001
  2. SORAFENIB [Suspect]
     Dosage: 400 MG, BID
     Route: 048
     Dates: start: 20101112, end: 20110106
  3. SORAFENIB [Suspect]
     Dosage: 400 MG, UID/QD
     Route: 048
     Dates: start: 20100107, end: 20110627
  4. SENNA [Concomitant]
     Indication: CONSTIPATION
     Dosage: UNK
     Route: 065
     Dates: start: 20101105
  5. PLACEBO [Suspect]
     Dosage: 150 MG, UID/QD
     Route: 048
     Dates: start: 20101112, end: 20110106
  6. METFORMIN HCL [Concomitant]
     Indication: DIABETES MELLITUS
     Dosage: UNK
     Route: 065
     Dates: start: 20010701
  7. ONDANSETRON [Concomitant]
     Indication: NAUSEA
     Dosage: UNK
     Route: 065
     Dates: start: 20110801
  8. CANDESARTAN CILEXETIL [Concomitant]
     Indication: HYPERTENSION
     Dosage: UNK
     Route: 065
     Dates: start: 20041001
  9. TOLBUTAMIDE [Concomitant]
     Indication: DIABETES MELLITUS
     Dosage: UNK
     Route: 065
     Dates: start: 19960901
  10. DOMPERIDONE [Concomitant]
     Indication: NAUSEA
     Dosage: UNK
     Route: 065
     Dates: start: 20101101
  11. SORAFENIB [Suspect]
     Dosage: 400 MG, UID/QD
     Route: 048
     Dates: start: 20110715, end: 20120313
  12. ENOXAPARIN SODIUM [Concomitant]
     Indication: DEEP VEIN THROMBOSIS
     Dosage: UNK
     Route: 065
     Dates: start: 20110101, end: 20120201
  13. PLACEBO [Suspect]
     Indication: HEPATIC NEOPLASM MALIGNANT
     Dosage: 150 MG, UID/QD
     Route: 048
     Dates: start: 20121015, end: 20101104
  14. PLACEBO [Suspect]
     Dosage: 100 MG, UID/QD
     Route: 048
     Dates: start: 20110107, end: 20110602
  15. PLACEBO [Suspect]
     Dosage: 100 MG, UID/QD
     Route: 048
     Dates: start: 20110628, end: 20120313
  16. SORAFENIB [Suspect]
     Indication: HEPATIC NEOPLASM MALIGNANT
     Dosage: 400 MG, BID
     Route: 048
     Dates: start: 20101015, end: 20101104
  17. DIPROBASE [Concomitant]
     Indication: SKIN DISORDER
     Dosage: UNK
     Route: 065
     Dates: start: 20101224
  18. CHLORAMPHENICOL [Concomitant]
     Indication: EYE INFECTION
     Dosage: UNK
     Route: 065
     Dates: start: 20120101, end: 20120101
  19. LACTULOSE [Concomitant]
     Indication: CONSTIPATION
     Dosage: UNK
     Route: 065
     Dates: start: 20110801, end: 20120101

REACTIONS (7)
  - MACULAR OEDEMA [None]
  - RETINAL HAEMORRHAGE [None]
  - RETINAL VASCULAR OCCLUSION [None]
  - OCULAR VASCULAR DISORDER [None]
  - ADVERSE EVENT [None]
  - CATARACT [None]
  - RETINAL VEIN OCCLUSION [None]
